FAERS Safety Report 23744469 (Version 1)
Quarter: 2024Q2

REPORT INFORMATION
  Report Type: Spontaneous
  Country: CA (occurrence: CA)
  Receive Date: 20240415
  Receipt Date: 20240415
  Transmission Date: 20240715
  Serious: Yes (Death, Life-Threatening, Other)
  Sender: FDA-Public Use
  Company Number: CA-TEVA-VS-3181331

PATIENT
  Age: 16 Year
  Sex: Male

DRUGS (3)
  1. PAROXETINE HYDROCHLORIDE [Suspect]
     Active Substance: PAROXETINE HYDROCHLORIDE\PAROXETINE HYDROCHLORIDE ANHYDROUS
     Indication: Obsessive-compulsive disorder
     Route: 065
  2. PAROXETINE HYDROCHLORIDE [Suspect]
     Active Substance: PAROXETINE HYDROCHLORIDE\PAROXETINE HYDROCHLORIDE ANHYDROUS
     Indication: Obsessive-compulsive disorder
     Route: 065
  3. PHENOTHIAZINE [Concomitant]
     Active Substance: PHENOTHIAZINE
     Indication: Obsessive-compulsive disorder
     Route: 065

REACTIONS (18)
  - Affect lability [Fatal]
  - Affective disorder [Fatal]
  - Aggression [Fatal]
  - Completed suicide [Fatal]
  - Condition aggravated [Fatal]
  - Confusional state [Fatal]
  - Disinhibition [Fatal]
  - Initial insomnia [Fatal]
  - Irritability [Fatal]
  - Judgement impaired [Fatal]
  - Mental impairment [Fatal]
  - Suicidal ideation [Fatal]
  - Thinking abnormal [Fatal]
  - Product prescribing issue [Fatal]
  - Behaviour disorder [Fatal]
  - General physical health deterioration [Fatal]
  - Insomnia [Fatal]
  - Off label use [Fatal]
